FAERS Safety Report 5142644-8 (Version None)
Quarter: 2006Q4

REPORT INFORMATION
  Report Type: 
  Country: None (occurrence: None)
  Receive Date: 20061102
  Receipt Date: 20061101
  Transmission Date: 20070319
  Serious: Yes (Death)
  Sender: FDA-Public Use
  Company Number: BR-BOEHRINGER INGELHEIM PHARMACEUTICALS, INC.-2006-BP-12782BR

PATIENT
  Age: 94 Year
  Sex: Male

DRUGS (1)
  1. SECOTEX [Suspect]
     Indication: DYSURIA
     Route: 048
     Dates: start: 20061026, end: 20061026

REACTIONS (3)
  - CARDIAC FAILURE [None]
  - INTENTIONAL DRUG MISUSE [None]
  - PULMONARY OEDEMA [None]
